FAERS Safety Report 9006174 (Version 1)
Quarter: 2013Q1

REPORT INFORMATION
  Report Type: Spontaneous
  Country: US (occurrence: US)
  Receive Date: 20130110
  Receipt Date: 20130110
  Transmission Date: 20140127
  Serious: Yes (Life-Threatening)
  Sender: FDA-Public Use
  Company Number: US-009507513-0907USA03813

PATIENT
  Age: 31 Year
  Sex: Female
  Weight: 53.52 kg

DRUGS (1)
  1. SINGULAIR [Suspect]
     Indication: ASTHMA
     Dosage: 1 DF, QD
     Route: 048
     Dates: start: 20081016, end: 20081120

REACTIONS (5)
  - Altered state of consciousness [Recovered/Resolved]
  - Asthma [Unknown]
  - Depression [Recovered/Resolved]
  - Stress [Unknown]
  - Suicidal ideation [Recovered/Resolved]
